FAERS Safety Report 23603732 (Version 6)
Quarter: 2024Q3

REPORT INFORMATION
  Report Type: Report from Study
  Country: US (occurrence: US)
  Receive Date: 20240307
  Receipt Date: 20240923
  Transmission Date: 20241016
  Serious: Yes (Hospitalization, Other)
  Sender: ABBVIE
  Company Number: US-ABBVIE-5666610

PATIENT
  Age: 69 Year
  Sex: Male
  Weight: 145 kg

DRUGS (2)
  1. IMBRUVICA [Suspect]
     Active Substance: IBRUTINIB
     Indication: B-cell lymphoma
     Dosage: FORM STRENGTH 140 MILLIGRAM
     Route: 048
     Dates: start: 20221025, end: 202402
  2. IMBRUVICA [Suspect]
     Active Substance: IBRUTINIB
     Indication: B-cell lymphoma
     Dosage: FORM STRENGTH 140 MILLIGRAM
     Route: 048
     Dates: start: 202403

REACTIONS (4)
  - Electrocardiogram abnormal [Recovered/Resolved]
  - Neoplasm [Not Recovered/Not Resolved]
  - Lymphoma [Not Recovered/Not Resolved]
  - Product dispensing error [Unknown]

NARRATIVE: CASE EVENT DATE: 20230701
